FAERS Safety Report 7640227-9 (Version None)
Quarter: 2011Q3

REPORT INFORMATION
  Report Type: 
  Country: None (occurrence: None)
  Receive Date: 20110728
  Receipt Date: 20110725
  Transmission Date: 20111222
  Serious: Yes (Other)
  Sender: FDA-Public Use
  Company Number: US-BAYER-2011-065151

PATIENT
  Age: 36 Year
  Sex: Female

DRUGS (6)
  1. YASMIN [Suspect]
     Dosage: UNK
     Dates: start: 20060925, end: 20061225
  2. DROSPIRENONE AND ETHINYL ESTRADIOL [Suspect]
     Dosage: UNK
     Dates: start: 20080803, end: 20090107
  3. YASMIN [Suspect]
     Dosage: UNK
     Dates: start: 20080608, end: 20080803
  4. YASMIN [Suspect]
     Dosage: UNK
     Dates: start: 20090107, end: 20090701
  5. DROSPIRENONE AND ETHINYL ESTRADIOL [Suspect]
     Dosage: UNK
     Dates: start: 20090827, end: 20091001
  6. YAZ [Suspect]
     Dosage: UNK
     Dates: start: 20060815, end: 20060925

REACTIONS (2)
  - CHOLECYSTECTOMY [None]
  - INJURY [None]
